FAERS Safety Report 21367736 (Version 1)
Quarter: 2022Q3

REPORT INFORMATION
  Report Type: Spontaneous
  Country: GB (occurrence: GB)
  Receive Date: 20220923
  Receipt Date: 20220923
  Transmission Date: 20221026
  Serious: Yes (Other)
  Sender: FDA-Public Use
  Company Number: GB-ALLERGAN-2227900US

PATIENT
  Age: 25 Year
  Sex: Female

DRUGS (2)
  1. ACITRETIN [Suspect]
     Active Substance: ACITRETIN
     Indication: Ichthyosis
     Route: 065
  2. ISOTRETINOIN [Suspect]
     Active Substance: ISOTRETINOIN
     Indication: Ichthyosis
     Route: 065

REACTIONS (2)
  - Spinal ligament ossification [Unknown]
  - Bone hypertrophy [Unknown]
